FAERS Safety Report 16824130 (Version 3)
Quarter: 2019Q4

REPORT INFORMATION
  Report Type: Report from Study
  Country: US (occurrence: US)
  Receive Date: 20190918
  Receipt Date: 20191206
  Transmission Date: 20200122
  Serious: Yes (Hospitalization)
  Sender: FDA-Public Use
  Company Number: US-BAYER-2019-166764

PATIENT
  Age: 16 Year
  Sex: Male
  Weight: 46 kg

DRUGS (3)
  1. COPANLISIB. [Suspect]
     Active Substance: COPANLISIB
     Indication: RENAL CELL CARCINOMA RECURRENT
     Dosage: 39.2 MG 3 WEEKS ON/1 WEEK OFF
     Route: 042
     Dates: start: 20190828, end: 20190828
  2. COPANLISIB. [Suspect]
     Active Substance: COPANLISIB
     Indication: RENAL CELL CARCINOMA RECURRENT
     Dosage: 39.2 MG 3 WEEKS ON/1 WEEK OFF
     Route: 042
     Dates: start: 20190904, end: 20190904
  3. COPANLISIB. [Suspect]
     Active Substance: COPANLISIB
     Indication: RENAL CELL CARCINOMA RECURRENT
     Dosage: 3 WEEKS ON/1 WEEK OFF
     Route: 042

REACTIONS (3)
  - Hyperuricaemia [Recovered/Resolved]
  - Hyperglycaemia [Recovered/Resolved]
  - Abdominal pain [Not Recovered/Not Resolved]

NARRATIVE: CASE EVENT DATE: 20190904
